FAERS Safety Report 7002103-4 (Version None)
Quarter: 2010Q3

REPORT INFORMATION
  Report Type: 
  Country: None (occurrence: None)
  Receive Date: 20100920
  Receipt Date: 20100517
  Transmission Date: 20110219
  Serious: Yes (Disabling)
  Sender: FDA-Public Use
  Company Number: US-ASTRAZENECA-2007UW09193

PATIENT
  Sex: Male

DRUGS (6)
  1. SEROQUEL [Suspect]
     Route: 048
  2. PROGRAF [Concomitant]
     Dosage: 2 MG IN MORNING, 1 MG IN THE EVENING
  3. PREVACID [Concomitant]
  4. BACTRIM [Concomitant]
  5. URSO 250 [Concomitant]
  6. AMARYL [Concomitant]

REACTIONS (1)
  - DIABETES MELLITUS [None]
